FAERS Safety Report 9291163 (Version 5)
Quarter: 2013Q3

REPORT INFORMATION
  Report Type: Report from Study
  Country: US (occurrence: US)
  Receive Date: 20130515
  Receipt Date: 20130703
  Transmission Date: 20140515
  Serious: Yes (Hospitalization)
  Sender: FDA-Public Use
  Company Number: US-AMGEN-USACT2013034231

PATIENT
  Age: 91 Year
  Sex: Female
  Weight: 48.53 kg

DRUGS (15)
  1. DENOSUMAB [Suspect]
     Indication: OSTEOPOROSIS POSTMENOPAUSAL
     Dosage: 60 MG, Q6MO
     Route: 058
     Dates: start: 20100401, end: 20110330
  2. CORTICOSTEROIDS [Concomitant]
  3. INSULIN GLARGINE [Concomitant]
     Dosage: UNK UNK, BID
  4. HUMALOG [Concomitant]
  5. CALCIUM CARBONATE [Concomitant]
     Dosage: 500 MG, QD
  6. VITAMIN D [Concomitant]
     Dosage: 1000 IU, QD
  7. VITAMIN B12 [Concomitant]
  8. IRON [Concomitant]
  9. MULTIVITAMIN [Concomitant]
  10. ZOCOR [Concomitant]
     Dosage: 5 MG, UNK
  11. HYDROCHLOROTHIAZIDE [Concomitant]
     Dosage: 12.5 MG, UNK
  12. DIOVAN [Concomitant]
     Dosage: 80 MG, UNK
  13. ASA [Concomitant]
     Dosage: 81 MG, QD
  14. BETAXOLOL [Concomitant]
     Dosage: 1 GTT, BID
     Route: 047
  15. DORZOLAMIDE [Concomitant]
     Dosage: 1 GTT, TID
     Route: 047

REACTIONS (2)
  - Hyperglycaemia [Recovered/Resolved]
  - Loss of consciousness [Recovered/Resolved]
